FAERS Safety Report 10414064 (Version 1)
Quarter: 2014Q3

REPORT INFORMATION
  Report Type: Spontaneous
  Country: GB (occurrence: None)
  Receive Date: 20140826
  Receipt Date: 20140826
  Transmission Date: 20150326
  Serious: Yes (Other)
  Sender: FDA-Public Use
  Company Number: AUR-APL-2014-08923

PATIENT
  Age: 17 Year
  Sex: Female
  Weight: 52 kg

DRUGS (3)
  1. SERTRALINE (SERTARALINE) [Concomitant]
  2. OLANZAPINE 5MG (OLANZAPINE) UNKNOWN, 5MG [Suspect]
     Active Substance: OLANZAPINE
     Indication: ANOREXIA NERVOSA
     Route: 048
     Dates: end: 201406
  3. OLANZAPINE 5MG (OLANZAPINE) UNKNOWN, 5MG [Suspect]
     Active Substance: OLANZAPINE
     Indication: ANXIETY
     Route: 048
     Dates: end: 201406

REACTIONS (3)
  - Withdrawal syndrome [None]
  - Vomiting [None]
  - Anxiety [None]
